FAERS Safety Report 5630877-3 (Version None)
Quarter: 2008Q1

REPORT INFORMATION
  Report Type: 
  Country: None (occurrence: None)
  Receive Date: 20080219
  Receipt Date: 20080207
  Transmission Date: 20080703
  Serious: Yes (Hospitalization, Disabling, Other)
  Sender: FDA-Public Use
  Company Number: FI-ROCHE-542108

PATIENT
  Age: 67 Year
  Sex: Female
  Weight: 73 kg

DRUGS (5)
  1. BONIVA [Suspect]
     Indication: OSTEOPOROSIS
     Route: 048
     Dates: start: 20080101, end: 20080101
  2. PREDNISOLONE [Concomitant]
     Indication: RHEUMATOID ARTHRITIS
     Dosage: FREQUENCY REPORTED AS EVERY OTHER DAY.
     Route: 048
  3. CELEBRA [Concomitant]
     Indication: PAIN
     Route: 048
  4. 1 CONCOMITANT DRUG [Concomitant]
     Indication: RHEUMATOID ARTHRITIS
     Dosage: DRUG REPORTED AS CHRYSOTHERAPY.
     Route: 030
  5. MYOCRISIN [Concomitant]
     Indication: RHEUMATOID ARTHRITIS
     Route: 030
     Dates: start: 19730101

REACTIONS (7)
  - BALANCE DISORDER [None]
  - DYSPNOEA [None]
  - GUILLAIN-BARRE SYNDROME [None]
  - HYPOAESTHESIA [None]
  - MUSCULAR WEAKNESS [None]
  - MUSCULOSKELETAL STIFFNESS [None]
  - PARAESTHESIA [None]
